FAERS Safety Report 18593186 (Version 2)
Quarter: 2021Q1

REPORT INFORMATION
  Report Type: Spontaneous
  Country: CO (occurrence: CO)
  Receive Date: 20201209
  Receipt Date: 20210118
  Transmission Date: 20210419
  Serious: No
  Sender: FDA-Public Use
  Company Number: CO-009507513-2012COL003722

PATIENT
  Age: 18 Year
  Sex: Female
  Weight: 48.7 kg

DRUGS (1)
  1. IMPLANON NXT [Suspect]
     Active Substance: ETONOGESTREL
     Indication: CONTRACEPTION
     Dosage: 1 IMPLANT; ONCE, DURATION: 3 YEARS
     Route: 059
     Dates: start: 20200930, end: 20201202

REACTIONS (4)
  - Dizziness [Unknown]
  - Maternal exposure during pregnancy [Not Recovered/Not Resolved]
  - Nausea [Unknown]
  - Discomfort [Unknown]

NARRATIVE: CASE EVENT DATE: 2020
